FAERS Safety Report 4686313-7 (Version None)
Quarter: 2005Q2

REPORT INFORMATION
  Report Type: 
  Country: None (occurrence: None)
  Receive Date: 20050609
  Receipt Date: 20050602
  Transmission Date: 20051028
  Serious: Yes (Other)
  Sender: FDA-Public Use
  Company Number: PHEH2005US06263

PATIENT
  Age: 35 Year
  Sex: Female

DRUGS (9)
  1. GLEEVEC [Suspect]
     Indication: CHRONIC MYELOID LEUKAEMIA
     Dosage: 400 MG, QD
     Route: 048
     Dates: start: 20020118
  2. ALLOPURINOL [Concomitant]
     Route: 048
  3. IRON [Concomitant]
     Route: 048
  4. WELLBUTRIN SR [Concomitant]
     Route: 048
  5. LORTAB [Concomitant]
     Dosage: UNK, PRN
     Route: 048
  6. NAPROXEN [Concomitant]
     Dosage: UNK, PRN
     Route: 048
  7. K-DUR 10 [Concomitant]
     Dosage: UNK, PRN
     Route: 048
  8. LASIX [Concomitant]
     Dosage: UNK, PRN
     Route: 048
  9. IMODIUM [Concomitant]
     Dosage: UNK, PRN
     Route: 048

REACTIONS (4)
  - ABORTION SPONTANEOUS [None]
  - ARTHRALGIA [None]
  - MYALGIA [None]
  - PREGNANCY [None]
